FAERS Safety Report 13573065 (Version 1)
Quarter: 2017Q2

REPORT INFORMATION
  Report Type: Report from Study
  Country: CA (occurrence: CA)
  Receive Date: 20170523
  Receipt Date: 20170523
  Transmission Date: 20170830
  Serious: Yes (Other)
  Sender: FDA-Public Use
  Company Number: CA-AMGEN-CANSL2017074618

PATIENT
  Age: 66 Year
  Sex: Male

DRUGS (11)
  1. SPIRIVA [Concomitant]
     Active Substance: TIOTROPIUM BROMIDE MONOHYDRATE
  2. ADVAIR HFA [Concomitant]
     Active Substance: FLUTICASONE PROPIONATE\SALMETEROL XINAFOATE
  3. DILTIAZEM. [Concomitant]
     Active Substance: DILTIAZEM
  4. TECTA [Concomitant]
     Active Substance: PANTOPRAZOLE MAGNESIUM
  5. REPATHA [Suspect]
     Active Substance: EVOLOCUMAB
     Indication: ARTERIOSCLEROSIS
     Dosage: 140 MG/ML, UNK
     Route: 065
     Dates: start: 20160630
  6. METFORMIN [Concomitant]
     Active Substance: METFORMIN HYDROCHLORIDE
  7. ALLOPURINOL. [Concomitant]
     Active Substance: ALLOPURINOL
  8. ZOPLICONE [Concomitant]
     Active Substance: ZOPICLONE
  9. COMBIVENT [Concomitant]
     Active Substance: ALBUTEROL SULFATE\IPRATROPIUM BROMIDE
  10. TAMSULOSIN [Concomitant]
     Active Substance: TAMSULOSIN
  11. PREDNISONE. [Concomitant]
     Active Substance: PREDNISONE
     Dosage: UNK UNK, AS NECESSARY

REACTIONS (4)
  - Lower respiratory tract infection [Unknown]
  - Pyrexia [Not Recovered/Not Resolved]
  - Inappropriate schedule of drug administration [Unknown]
  - Dyspnoea [Not Recovered/Not Resolved]

NARRATIVE: CASE EVENT DATE: 201703
